FAERS Safety Report 20986901 (Version 2)
Quarter: 2022Q2

REPORT INFORMATION
  Report Type: Report from Study
  Country: IE (occurrence: IE)
  Receive Date: 20220621
  Receipt Date: 20220627
  Transmission Date: 20220720
  Serious: Yes (Hospitalization)
  Sender: FDA-Public Use
  Company Number: IE-PFIZER INC-202200853634

PATIENT
  Age: 36 Year
  Sex: Female

DRUGS (3)
  1. MEROPENEM [Suspect]
     Active Substance: MEROPENEM
     Indication: Abdominal abscess
     Dosage: 1 G, 2X/DAY
     Route: 042
     Dates: start: 20220601
  2. MEROPENEM [Suspect]
     Active Substance: MEROPENEM
     Indication: Abdominal infection
  3. SODIUM CHLORIDE [Suspect]
     Active Substance: SODIUM CHLORIDE
     Indication: Medication dilution
     Route: 042

REACTIONS (3)
  - Fatigue [Not Recovered/Not Resolved]
  - Body temperature increased [Recovered/Resolved]
  - Heart rate increased [Recovered/Resolved]

NARRATIVE: CASE EVENT DATE: 20220602
